FAERS Safety Report 7813158-9 (Version None)
Quarter: 2011Q4

REPORT INFORMATION
  Report Type: 
  Country: None (occurrence: None)
  Receive Date: 20111013
  Receipt Date: 20111004
  Transmission Date: 20120403
  Serious: Yes (Hospitalization)
  Sender: FDA-Public Use
  Company Number: SE-BAXTER-2011BH031374

PATIENT
  Sex: Male
  Weight: 50 kg

DRUGS (6)
  1. FEIBA [Suspect]
     Route: 042
     Dates: start: 20110929, end: 20111001
  2. FEIBA [Suspect]
     Indication: FACTOR VIII DEFICIENCY
     Route: 042
     Dates: start: 20110312, end: 20110312
  3. FEIBA [Suspect]
     Route: 042
     Dates: start: 20110929, end: 20111001
  4. FEIBA [Suspect]
     Route: 042
     Dates: start: 20110926, end: 20110928
  5. FEIBA [Suspect]
     Indication: FACTOR VIII INHIBITION
     Route: 042
     Dates: start: 20110312, end: 20110312
  6. FEIBA [Suspect]
     Route: 042
     Dates: start: 20110926, end: 20110928

REACTIONS (2)
  - PAIN IN EXTREMITY [None]
  - ARTHRALGIA [None]
